FAERS Safety Report 4726885-7 (Version None)
Quarter: 2005Q3

REPORT INFORMATION
  Report Type: 
  Country: None (occurrence: None)
  Receive Date: 20050725
  Receipt Date: 20050725
  Transmission Date: 20060218
  Serious: Yes (Hospitalization)
  Sender: FDA-Public Use
  Company Number: None

PATIENT
  Age: 72 Month
  Sex: Male
  Weight: 122.0176 kg

DRUGS (20)
  1. WARFARIN 5MG DUPONT [Suspect]
     Indication: ATRIAL FIBRILLATION
     Dosage: 7.5MG QHS ORAL
     Route: 048
     Dates: start: 20020613, end: 20050503
  2. WARFARIN 5MG DUPONT [Suspect]
     Indication: ATRIAL FLUTTER
     Dosage: 7.5MG QHS ORAL
     Route: 048
     Dates: start: 20020613, end: 20050503
  3. CLOPIDOGREL 75MG [Suspect]
     Indication: CORONARY ARTERY DISEASE
     Dosage: 75MG QD ORAL
     Route: 048
     Dates: start: 20040629, end: 20050503
  4. HUMULIN 70/30 [Concomitant]
  5. ISOSORBIDE DINITRATE [Concomitant]
  6. DOCUSATE [Concomitant]
  7. NORTRIPTYLINE HCL [Concomitant]
  8. TRAMADOL [Concomitant]
  9. TAMSULOSIN [Concomitant]
  10. METOPROLOL [Concomitant]
  11. ZOCOR [Concomitant]
  12. RANITIDINE [Concomitant]
  13. ENALAPRIL [Concomitant]
  14. GEMFIBROZIL [Concomitant]
  15. BISACODYL [Concomitant]
  16. POTASSIUM CHLORIDE [Concomitant]
  17. LASIX [Concomitant]
  18. COLCHICINE [Concomitant]
  19. TYLENOL W/ CODEINE NO. 3 [Concomitant]
  20. ADVAIR DISKUS 100/50 [Concomitant]

REACTIONS (10)
  - CHEST PAIN [None]
  - HAEMATOCRIT DECREASED [None]
  - HYPERHIDROSIS [None]
  - HYPOTENSION [None]
  - INTERNATIONAL NORMALISED RATIO DECREASED [None]
  - INTERNATIONAL NORMALISED RATIO INCREASED [None]
  - MELAENA [None]
  - OCCULT BLOOD POSITIVE [None]
  - SYNCOPE [None]
  - URINARY TRACT INFECTION [None]
